FAERS Safety Report 4846781-4 (Version None)
Quarter: 2005Q4

REPORT INFORMATION
  Report Type: 
  Country: None (occurrence: None)
  Receive Date: 20051201
  Receipt Date: 20051122
  Transmission Date: 20060501
  Serious: Yes (Disabling, Other)
  Sender: FDA-Public Use
  Company Number: 2005138516

PATIENT
  Age: 46 Year
  Sex: Male
  Weight: 93.441 kg

DRUGS (8)
  1. LIPITOR [Suspect]
     Indication: BLOOD CHOLESTEROL INCREASED
     Dosage: 1 IN 1 D, ORAL
     Route: 048
  2. LOPID [Suspect]
     Indication: BLOOD CHOLESTEROL INCREASED
     Dosage: 1200 MG (600 MG, 2 IN 1 D), ORAL
     Route: 048
     Dates: start: 20040101
  3. UROCIT-K (POTASSIUM CITRATE) [Concomitant]
  4. ALLOPURINOL [Concomitant]
  5. PINDOLOL [Concomitant]
  6. BENAZEPRIL HCL [Concomitant]
  7. SYNTHROID [Concomitant]
  8. PAXIL [Concomitant]

REACTIONS (4)
  - ANGIOPATHY [None]
  - MEMORY IMPAIRMENT [None]
  - SYNCOPE [None]
  - THERAPY NON-RESPONDER [None]
